FAERS Safety Report 16591594 (Version 1)
Quarter: 2019Q3

REPORT INFORMATION
  Report Type: Spontaneous
  Country: DE (occurrence: DE)
  Receive Date: 20190718
  Receipt Date: 20190718
  Transmission Date: 20191004
  Serious: Yes (Other)
  Sender: FDA-Public Use
  Company Number: DE-PFIZER INC-2019300136

PATIENT
  Age: 67 Year
  Sex: Female
  Weight: 60 kg

DRUGS (7)
  1. MELPERON [Suspect]
     Active Substance: MELPERONE
     Dosage: 3 DF, 1X/DAY (1-1-1 TABLET/S LONG-TERM MEDICATION)
     Route: 048
  2. RIVASTIGMIN [RIVASTIGMINE] [Suspect]
     Active Substance: RIVASTIGMINE
     Dosage: 3 MG, 1X/DAY
     Route: 048
  3. IBUPROFEN. [Suspect]
     Active Substance: IBUPROFEN
     Dosage: 600 MG, SINGLE
     Route: 048
     Dates: start: 20190625, end: 20190625
  4. MADOPAR [Suspect]
     Active Substance: BENSERAZIDE HYDROCHLORIDE\LEVODOPA
     Dosage: 125 MG, SINGLE (1 TABLET/S CONFUSION)
     Route: 048
     Dates: start: 20190625, end: 20190625
  5. XARELTO [Suspect]
     Active Substance: RIVAROXABAN
     Dosage: 1 DF, 1X/DAY (1 TABLET/S CONFUSION)
     Route: 048
  6. QUETIAPINE. [Suspect]
     Active Substance: QUETIAPINE
     Dosage: 50 MG, SINGLE (1 TABLET/S CONFUSION)
     Route: 048
     Dates: start: 20190625, end: 20190625
  7. MIRTAZAPINE. [Suspect]
     Active Substance: MIRTAZAPINE
     Dosage: 1 DF, 1X/DAY (0-0-1 TABLET/S LONG-TERM MEDICATION)
     Route: 048

REACTIONS (2)
  - Accidental exposure to product [Unknown]
  - Vomiting [Unknown]
